FAERS Safety Report 7936623-2 (Version None)
Quarter: 2011Q4

REPORT INFORMATION
  Report Type: 
  Country: None (occurrence: None)
  Receive Date: 20111123
  Receipt Date: 20111117
  Transmission Date: 20120403
  Serious: Yes (Life-Threatening, Other)
  Sender: FDA-Public Use
  Company Number: US-MYLANLABS-2011S1022143

PATIENT
  Age: 49 Year
  Sex: Female
  Weight: 81.65 kg

DRUGS (13)
  1. ULTRAM [Concomitant]
  2. NOVOLOG [Concomitant]
  3. WELLBUTRIN [Concomitant]
  4. CELLCEPT [Concomitant]
  5. RESTORIL [Concomitant]
  6. VITAMIN D [Concomitant]
  7. ATIVAN [Concomitant]
  8. AMNESTEEM [Suspect]
     Route: 048
     Dates: end: 20111006
  9. PROGRAF [Concomitant]
  10. LANTUS [Concomitant]
  11. FOLIC ACID [Concomitant]
  12. AMNESTEEM [Suspect]
     Indication: ACNE CYSTIC
     Route: 048
     Dates: start: 20110715
  13. NEXIUM [Concomitant]

REACTIONS (3)
  - BLOOD CHOLESTEROL INCREASED [None]
  - FEMALE REPRODUCTIVE NEOPLASM [None]
  - BLOOD TRIGLYCERIDES INCREASED [None]
